FAERS Safety Report 17081149 (Version 2)
Quarter: 2019Q4

REPORT INFORMATION
  Report Type: Spontaneous
  Country: US (occurrence: US)
  Receive Date: 20191127
  Receipt Date: 20191205
  Transmission Date: 20200122
  Serious: Yes (Hospitalization, Other)
  Sender: FDA-Public Use
  Company Number: US-RECORDATI RARE DISEASES-2077242

PATIENT
  Age: 51 Year
  Sex: Male
  Weight: 131 kg

DRUGS (10)
  1. CYSTADANE [Suspect]
     Active Substance: BETAINE
     Indication: HOMOCYSTINURIA
     Dates: start: 1996
  2. CYSTADANE [Suspect]
     Active Substance: BETAINE
     Dates: start: 20191104
  3. CYMBALTA [Concomitant]
     Active Substance: DULOXETINE HYDROCHLORIDE
  4. PRILOSEC [Concomitant]
     Active Substance: OMEPRAZOLE MAGNESIUM
  5. LYRICA [Suspect]
     Active Substance: PREGABALIN
  6. LASIX [Concomitant]
     Active Substance: FUROSEMIDE
  7. VITAMIN B12 [Concomitant]
     Active Substance: CYANOCOBALAMIN
  8. FOLATE [Concomitant]
     Active Substance: FOLATE SODIUM
  9. ZOFRAN [Concomitant]
     Active Substance: ONDANSETRON HYDROCHLORIDE
  10. B6 [Concomitant]
     Active Substance: PYRIDOXINE HYDROCHLORIDE

REACTIONS (8)
  - Serum serotonin increased [Unknown]
  - Diarrhoea [Unknown]
  - Off label use [Unknown]
  - Irritable bowel syndrome [Unknown]
  - Therapy cessation [Recovered/Resolved]
  - Nervous system disorder [Unknown]
  - Dysarthria [Recovered/Resolved]
  - Inappropriate schedule of product administration [Unknown]

NARRATIVE: CASE EVENT DATE: 20191031
